FAERS Safety Report 5766916-9 (Version None)
Quarter: 2008Q2

REPORT INFORMATION
  Report Type: 
  Country: None (occurrence: None)
  Receive Date: 20080612
  Receipt Date: 20080609
  Transmission Date: 20081010
  Serious: Yes (Life-Threatening)
  Sender: FDA-Public Use
  Company Number: JP-BAYER-200810285BYL

PATIENT
  Age: 48 Year
  Sex: Female
  Weight: 50 kg

DRUGS (6)
  1. CIPROXAN-I.V. [Suspect]
     Indication: PNEUMONIA
     Dosage: TOTAL DAILY DOSE: 600 MG  UNIT DOSE: 300 MG
     Route: 041
     Dates: start: 20061020, end: 20061030
  2. ASPIRIN [Suspect]
     Route: 048
     Dates: start: 20061001, end: 20061101
  3. UNASYN [Suspect]
     Indication: PNEUMONIA
     Route: 041
     Dates: start: 20061017, end: 20061020
  4. SULFAMETHOXAZOLE AND TRIMETHOPRIM [Suspect]
     Indication: PNEUMONIA
     Dosage: TOTAL DAILY DOSE: 1 DF
     Route: 048
     Dates: start: 20061030, end: 20061110
  5. ROCEPHIN [Suspect]
     Indication: PNEUMONIA
     Dosage: TOTAL DAILY DOSE: 4 G
     Route: 041
     Dates: start: 20061020, end: 20061030
  6. BLOPRESS [Suspect]
     Indication: HYPERTENSION
     Dosage: TOTAL DAILY DOSE: 2 MG
     Route: 048
     Dates: start: 20061028, end: 20061110

REACTIONS (1)
  - TOXIC EPIDERMAL NECROLYSIS [None]
